FAERS Safety Report 9254516 (Version 4)
Quarter: 2013Q3

REPORT INFORMATION
  Report Type: Spontaneous
  Country: GB (occurrence: None)
  Receive Date: 20130422
  Receipt Date: 20130703
  Transmission Date: 20140515
  Serious: Yes (Other)
  Sender: FDA-Public Use
  Company Number: AUR-APL-2013-03158

PATIENT
  Age: 73 Year
  Sex: Male

DRUGS (3)
  1. BISOPROLOL [Suspect]
     Indication: CARDIAC DISORDER
     Route: 048
     Dates: start: 20130214, end: 201304
  2. ALLOPURINOL [Concomitant]
  3. MULTIVITAMIN (MULTIVITAMINS) [Concomitant]

REACTIONS (7)
  - Rash [None]
  - Scab [None]
  - Skin exfoliation [None]
  - Swelling [None]
  - Somnolence [None]
  - Disturbance in attention [None]
  - Drug hypersensitivity [None]
